FAERS Safety Report 12827572 (Version 1)
Quarter: 2016Q4

REPORT INFORMATION
  Report Type: Spontaneous
  Country: US (occurrence: US)
  Receive Date: 20161006
  Receipt Date: 20161006
  Transmission Date: 20170207
  Serious: No
  Sender: FDA-Public Use
  Company Number: US-INDIVIOR LIMITED-INDV-092007-2016

PATIENT
  Age: 75 Year
  Sex: Male

DRUGS (2)
  1. SUBOXONE [Suspect]
     Active Substance: BUPRENORPHINE HYDROCHLORIDE\NALOXONE HYDROCHLORIDE
     Indication: DRUG DEPENDENCE
     Dosage: 8MG, TWICE A DAY, ABOUT 1 WEEK
     Route: 060
     Dates: start: 201606, end: 201606
  2. SUBOXONE [Suspect]
     Active Substance: BUPRENORPHINE HYDROCHLORIDE\NALOXONE HYDROCHLORIDE
     Dosage: 4MG, TWICE A DAY
     Route: 060
     Dates: start: 201606

REACTIONS (7)
  - Drug administered to patient of inappropriate age [Not Recovered/Not Resolved]
  - Somnolence [Not Recovered/Not Resolved]
  - Intentional underdose [Unknown]
  - Confusional state [Not Recovered/Not Resolved]
  - Product use issue [Not Recovered/Not Resolved]
  - Product preparation error [Not Recovered/Not Resolved]
  - Abdominal pain upper [Not Recovered/Not Resolved]

NARRATIVE: CASE EVENT DATE: 2016
